FAERS Safety Report 5231678-0 (Version None)
Quarter: 2007Q1

REPORT INFORMATION
  Report Type: 
  Country: None (occurrence: None)
  Receive Date: 20070202
  Receipt Date: 20070122
  Transmission Date: 20070707
  Serious: Yes (Death, Hospitalization)
  Sender: FDA-Public Use
  Company Number: CLOF-10433

PATIENT
  Age: 77 Year
  Sex: Male

DRUGS (1)
  1. CLOFARABINE [Suspect]
     Indication: ACUTE MYELOID LEUKAEMIA
     Dates: start: 20070106, end: 20070110

REACTIONS (13)
  - BACTEROIDES INFECTION [None]
  - BLADDER DISORDER [None]
  - ENTEROCOCCAL INFECTION [None]
  - GALLBLADDER DISORDER [None]
  - GOUT [None]
  - LUNG NEOPLASM [None]
  - NEUTROPENIA [None]
  - PATHOGEN RESISTANCE [None]
  - PLEURAL EFFUSION [None]
  - PNEUMONIA FUNGAL [None]
  - RENAL FAILURE ACUTE [None]
  - RESPIRATORY FAILURE [None]
  - SEPSIS [None]
